FAERS Safety Report 7473841-4 (Version None)
Quarter: 2011Q2

REPORT INFORMATION
  Report Type: 
  Country: None (occurrence: None)
  Receive Date: 20110503
  Receipt Date: 20110421
  Transmission Date: 20111010
  Serious: Yes (Other)
  Sender: FDA-Public Use
  Company Number: 2011SP016654

PATIENT
  Age: 40 Year
  Sex: Female

DRUGS (1)
  1. NUVARING [Suspect]
     Indication: CONTRACEPTION
     Dosage: VAG
     Route: 067
     Dates: start: 20110407, end: 20110412

REACTIONS (10)
  - EMOTIONAL DISORDER [None]
  - FEELING ABNORMAL [None]
  - DEPRESSED MOOD [None]
  - ABDOMINAL PAIN [None]
  - PALPITATIONS [None]
  - CRYING [None]
  - AGGRESSION [None]
  - BACK PAIN [None]
  - PANIC ATTACK [None]
  - SUICIDAL IDEATION [None]
